FAERS Safety Report 5158625-4 (Version None)
Quarter: 2006Q4

REPORT INFORMATION
  Report Type: 
  Country: None (occurrence: None)
  Receive Date: 20061128
  Receipt Date: 20061025
  Transmission Date: 20070319
  Serious: Yes (Hospitalization, Other)
  Sender: FDA-Public Use
  Company Number: CH-ELI_LILLY_AND_COMPANY-CH200610005105

PATIENT
  Age: 53 Year
  Sex: Female
  Weight: 64.3 kg

DRUGS (3)
  1. GEMZAR [Suspect]
     Indication: PANCREATIC CARCINOMA
     Dosage: 1650 MG, WEEKLY (1/W)
     Route: 042
     Dates: start: 20060406, end: 20060831
  2. OMEPRAZOLE [Concomitant]
     Dosage: 20 MG, DAILY (1/D)
  3. CALCIMAGON-D3 /SCH/ [Concomitant]
     Dosage: 1 U, DAILY (1/D)

REACTIONS (32)
  - AKINESIA [None]
  - ANAEMIA MACROCYTIC [None]
  - BLOOD CREATININE INCREASED [None]
  - BRAIN NATRIURETIC PEPTIDE INCREASED [None]
  - BRAIN SCAN ABNORMAL [None]
  - CAPILLARY LEAK SYNDROME [None]
  - CARDIAC DISORDER [None]
  - COMA [None]
  - CYANOSIS [None]
  - DILATATION ATRIAL [None]
  - DILATATION VENTRICULAR [None]
  - DYSPNOEA EXERTIONAL [None]
  - ELECTROCARDIOGRAM ABNORMAL [None]
  - FIBRIN D DIMER INCREASED [None]
  - HYPERTENSION [None]
  - HYPOALBUMINAEMIA [None]
  - HYPOPROTEINAEMIA [None]
  - LEUKOCYTOSIS [None]
  - METABOLIC ACIDOSIS [None]
  - MYDRIASIS [None]
  - OEDEMA PERIPHERAL [None]
  - PERICARDIAL EFFUSION [None]
  - PLEURAL EFFUSION [None]
  - PULMONARY CONGESTION [None]
  - PULMONARY HYPERTENSION [None]
  - RESPIRATORY ACIDOSIS [None]
  - SINUS TACHYCARDIA [None]
  - SUPERINFECTION [None]
  - THROMBOCYTHAEMIA [None]
  - TRICUSPID VALVE INCOMPETENCE [None]
  - VENTRICULAR HYPERKINESIA [None]
  - VENTRICULAR HYPERTROPHY [None]
